FAERS Safety Report 7045270-9 (Version None)
Quarter: 2010Q3

REPORT INFORMATION
  Report Type: 
  Country: None (occurrence: None)
  Receive Date: 20100929
  Receipt Date: 20100709
  Transmission Date: 20110219
  Serious: No
  Sender: FDA-Public Use
  Company Number: US-WYE-H16454810

PATIENT
  Age: 41 Year
  Sex: Male
  Weight: 83.99 kg

DRUGS (2)
  1. PRISTIQ [Suspect]
     Indication: INSOMNIA
     Dosage: 50 MG 1X PER 1 DAY
     Dates: start: 20100705
  2. ATENOLOL [Concomitant]

REACTIONS (3)
  - CONDITION AGGRAVATED [None]
  - HEADACHE [None]
  - TREMOR [None]
